FAERS Safety Report 19392378 (Version 2)
Quarter: 2021Q2

REPORT INFORMATION
  Report Type: Spontaneous
  Country: US (occurrence: US)
  Receive Date: 20210608
  Receipt Date: 20210622
  Transmission Date: 20210717
  Serious: Yes (Other)
  Sender: FDA-Public Use
  Company Number: US-BEH-2021132712

PATIENT
  Age: 59 Year
  Sex: Male
  Weight: 79.8 kg

DRUGS (2)
  1. ALBUMINAR?25 [Suspect]
     Active Substance: ALBUMIN HUMAN
     Dosage: 50 GRAM
     Route: 065
     Dates: start: 20210531
  2. ALBUMINAR?25 [Suspect]
     Active Substance: ALBUMIN HUMAN
     Dosage: 50 GRAM
     Route: 042
     Dates: start: 20210603

REACTIONS (11)
  - Respiratory distress [Recovered/Resolved]
  - Urticaria [Recovered/Resolved]
  - Hyporesponsive to stimuli [Recovered/Resolved]
  - Pruritus [Recovered/Resolved]
  - Emotional distress [Recovered/Resolved]
  - Hyporesponsive to stimuli [Recovered/Resolved]
  - Flushing [Recovered/Resolved]
  - Flushing [Recovered/Resolved]
  - Rash [Recovered/Resolved]
  - Urticaria [Recovered/Resolved]
  - Respiratory distress [Recovered/Resolved]

NARRATIVE: CASE EVENT DATE: 20210531
